FAERS Safety Report 16060314 (Version 1)
Quarter: 2019Q1

REPORT INFORMATION
  Report Type: Spontaneous
  Country: US (occurrence: US)
  Receive Date: 20190312
  Receipt Date: 20190312
  Transmission Date: 20190418
  Serious: No
  Sender: FDA-Public Use
  Company Number: US-BIOGEN-2019BI00707337

PATIENT
  Sex: Female

DRUGS (1)
  1. TYSABRI [Suspect]
     Active Substance: NATALIZUMAB
     Indication: MULTIPLE SCLEROSIS
     Route: 042
     Dates: start: 20181220

REACTIONS (5)
  - Hypoaesthesia [Unknown]
  - Nasopharyngitis [Unknown]
  - Respiratory tract infection [Unknown]
  - Pneumonia [Unknown]
  - Paraesthesia [Unknown]
